FAERS Safety Report 10006299 (Version 3)
Quarter: 2014Q2

REPORT INFORMATION
  Report Type: Spontaneous
  Country: GB (occurrence: GB)
  Receive Date: 20140313
  Receipt Date: 20140403
  Transmission Date: 20141212
  Serious: Yes (Disabling)
  Sender: FDA-Public Use
  Company Number: GB-SA-2014SA008369

PATIENT
  Age: 72 Year
  Sex: Male
  Weight: 76.3 kg

DRUGS (7)
  1. AFLIBERCEPT [Suspect]
     Indication: RECTAL CANCER
     Route: 042
     Dates: start: 20131014, end: 20131014
  2. AFLIBERCEPT [Suspect]
     Indication: RECTAL CANCER
     Route: 042
     Dates: start: 20131111, end: 20131111
  3. FOLINIC ACID [Concomitant]
     Indication: RECTAL CANCER
  4. IRINOTECAN [Concomitant]
     Indication: RECTAL CANCER
     Route: 042
     Dates: start: 20131014, end: 20131014
  5. IRINOTECAN [Concomitant]
     Indication: RECTAL CANCER
     Route: 042
     Dates: start: 20131111, end: 20131111
  6. FLUOROURACIL [Concomitant]
     Indication: RECTAL CANCER
     Route: 042
     Dates: start: 20131014, end: 20131014
  7. FLUOROURACIL [Concomitant]
     Indication: RECTAL CANCER
     Route: 042
     Dates: start: 20131111, end: 20131111

REACTIONS (6)
  - Pilonidal cyst [Recovering/Resolving]
  - Enterovesical fistula [Recovering/Resolving]
  - Pneumaturia [Recovering/Resolving]
  - Urinary tract infection [Recovering/Resolving]
  - Dysuria [Recovering/Resolving]
  - Micturition urgency [Recovering/Resolving]
